FAERS Safety Report 4698540-3 (Version None)
Quarter: 2005Q2

REPORT INFORMATION
  Report Type: 
  Country: None (occurrence: None)
  Receive Date: 20050622
  Receipt Date: 20050609
  Transmission Date: 20051028
  Serious: Yes (Hospitalization)
  Sender: FDA-Public Use
  Company Number: 2005076356

PATIENT
  Age: 74 Year
  Sex: Male
  Weight: 85.3 kg

DRUGS (7)
  1. EMCYT [Suspect]
     Indication: PROSTATE CANCER
     Dosage: 280 MG (CYCLIC INTERVAL: THREE TIMES A DAY) ORAL
     Route: 048
     Dates: start: 20030710, end: 20030710
  2. ETOPOSIDE [Suspect]
     Indication: PROSTATE CANCER
     Dosage: 1100 MG (50 MG/M*2, CYCLIC) ORAL
     Route: 048
     Dates: start: 20030710, end: 20030710
  3. TAXOL [Suspect]
     Indication: PROSTATE CANCER
     Dosage: 266 MG (135 MG/M*2, CYCLIC), INTRAVENOUS
     Route: 042
     Dates: start: 20030710, end: 20030710
  4. COMPAZINE [Concomitant]
  5. WARFARIN [Concomitant]
  6. NORVASC [Concomitant]
  7. LISINOPRIL [Concomitant]

REACTIONS (19)
  - ABDOMINAL DISTENSION [None]
  - CARDIAC MURMUR [None]
  - CREPITATIONS [None]
  - DERMATITIS [None]
  - DYSPNOEA [None]
  - EXCORIATION [None]
  - FEBRILE NEUTROPENIA [None]
  - HAEMOGLOBIN DECREASED [None]
  - LYMPHOPENIA [None]
  - MOUTH ULCERATION [None]
  - MUCOSAL INFLAMMATION [None]
  - NEUTROPENIA [None]
  - OEDEMA [None]
  - ORAL CANDIDIASIS [None]
  - PHARYNGITIS [None]
  - RASH MACULO-PAPULAR [None]
  - RESPIRATORY RATE INCREASED [None]
  - STOMATITIS [None]
  - WHITE BLOOD CELL COUNT DECREASED [None]
